FAERS Safety Report 8144135-9 (Version None)
Quarter: 2012Q1

REPORT INFORMATION
  Report Type: 
  Country: None (occurrence: None)
  Receive Date: 20120217
  Receipt Date: 20120215
  Transmission Date: 20120608
  Serious: Yes (Death)
  Sender: FDA-Public Use
  Company Number: TN-SANOFI-AVENTIS-2012SA010202

PATIENT
  Age: 79 Year
  Sex: Female

DRUGS (10)
  1. PLAVIX [Suspect]
     Indication: STENT PLACEMENT
     Route: 048
     Dates: start: 20090326, end: 20120116
  2. ROSUVASTATIN CALCIUM [Concomitant]
     Route: 048
     Dates: end: 20120116
  3. ASPEGIC 325 [Concomitant]
     Route: 048
     Dates: end: 20120116
  4. CORVASAL [Concomitant]
     Route: 048
     Dates: end: 20120116
  5. GLURENOR [Concomitant]
     Route: 048
     Dates: end: 20120116
  6. HYPOTEN [Concomitant]
     Route: 048
     Dates: end: 20120116
  7. PHENOBARBITAL TAB [Concomitant]
     Route: 048
     Dates: end: 20120116
  8. DEPAKENE [Concomitant]
     Route: 048
     Dates: end: 20120116
  9. PLAVIX [Suspect]
     Indication: ACUTE CORONARY SYNDROME
     Route: 048
     Dates: start: 20090326, end: 20120116
  10. ISOSORBIDE MONONITRATE [Concomitant]
     Route: 048
     Dates: end: 20120116

REACTIONS (1)
  - CARDIAC ARREST [None]
